FAERS Safety Report 9228766 (Version 2)
Quarter: 2013Q2

REPORT INFORMATION
  Report Type: Report from Study
  Country: DE (occurrence: DE)
  Receive Date: 20130412
  Receipt Date: 20130425
  Transmission Date: 20140414
  Serious: Yes (Hospitalization, Other)
  Sender: FDA-Public Use
  Company Number: DE-ROCHE-1211596

PATIENT
  Age: 47 Year
  Sex: Female
  Weight: 63 kg

DRUGS (1)
  1. TRASTUZUMAB [Suspect]
     Indication: BREAST CANCER
     Dosage: LAST DOSE PRIOR TO SAE ON 02/OCT/2007
     Route: 042
     Dates: start: 20051018

REACTIONS (1)
  - Contralateral breast cancer [Recovered/Resolved]
